FAERS Safety Report 8983982 (Version 1)
Quarter: 2012Q4

REPORT INFORMATION
  Report Type: Spontaneous
  Country: GB (occurrence: None)
  Receive Date: 20121212
  Receipt Date: 20121212
  Transmission Date: 20130627
  Serious: Yes (Other)
  Sender: FDA-Public Use
  Company Number: 2012-01738

PATIENT
  Age: 55 Year
  Sex: Male
  Weight: 169.9 kg

DRUGS (4)
  1. SIMVASTATIN [Suspect]
     Indication: DRUG USE FOR UNKNOWN INDICATION
     Dates: start: 201208, end: 201210
  2. AMLODIPINE (UNKNOWN) [Suspect]
     Dates: start: 201206
  3. BENDROFLUAZIDE [Suspect]
     Dates: start: 200804
  4. CANDESARTAN [Suspect]
     Dates: start: 200803, end: 201210

REACTIONS (2)
  - Renal failure acute [None]
  - Blood pressure inadequately controlled [None]
